FAERS Safety Report 8567155-9 (Version None)
Quarter: 2012Q3

REPORT INFORMATION
  Report Type: 
  Country: None (occurrence: None)
  Receive Date: 20120730
  Receipt Date: 20120730
  Transmission Date: 20120928
  Serious: Yes (Hospitalization)
  Sender: FDA-Public Use
  Company Number: None

PATIENT
  Age: 65 Year
  Sex: Female
  Weight: 62.5 kg

DRUGS (8)
  1. SELEGILINE [Suspect]
     Indication: PARKINSON'S DISEASE
     Dosage: 5MG BID PO RECENT
     Route: 048
  2. DIAZEPAM [Concomitant]
  3. ASPIRIN [Concomitant]
  4. AMANTADINE HCL [Concomitant]
  5. ROPINOROLE [Concomitant]
  6. DULCOLAX [Concomitant]
  7. HYDROCODONE BITARTRATE AND ACETAMINOPHEN [Concomitant]
  8. CARBIDOPA AND LEVODOPA [Concomitant]

REACTIONS (1)
  - EXTRAPYRAMIDAL DISORDER [None]
